FAERS Safety Report 4864047-3 (Version None)
Quarter: 2005Q4

REPORT INFORMATION
  Report Type: 
  Country: None (occurrence: None)
  Receive Date: 20051219
  Receipt Date: 20051219
  Transmission Date: 20060501
  Serious: Yes (Other)
  Sender: FDA-Public Use
  Company Number: None

PATIENT
  Age: 58 Year
  Sex: Male
  Weight: 78.6 kg

DRUGS (10)
  1. QUETIAPINE FUMARATE [Suspect]
     Indication: SCHIZOPHRENIA
     Dosage: 200 MG BID
     Dates: start: 20050907, end: 20050930
  2. ASPIRIN [Concomitant]
  3. BENZTROPINE MESYLATE [Concomitant]
  4. CLONAZEPAM [Concomitant]
  5. DIVALPROEX SODIUM [Concomitant]
  6. FOSINOPRIL [Concomitant]
  7. HALOPERIDOL [Concomitant]
  8. NIFEDIPINE [Concomitant]
  9. QUETIAPINE FUMARATE [Concomitant]
  10. RANITIDINE [Concomitant]

REACTIONS (1)
  - ELECTROCARDIOGRAM QT PROLONGED [None]
